FAERS Safety Report 13302981 (Version 1)
Quarter: 2017Q1

REPORT INFORMATION
  Report Type: Spontaneous
  Country: IT (occurrence: IT)
  Receive Date: 20170307
  Receipt Date: 20170307
  Transmission Date: 20170428
  Serious: Yes (Hospitalization)
  Sender: FDA-Public Use
  Company Number: IT-PFIZER INC-2017093300

PATIENT
  Age: 20 Year
  Sex: Female

DRUGS (9)
  1. AMIKACIN SULFATE. [Concomitant]
     Active Substance: AMIKACIN SULFATE
     Dosage: UNK
     Route: 042
     Dates: start: 20170206, end: 20170206
  2. TYGACIL [Suspect]
     Active Substance: TIGECYCLINE
     Indication: LUNG INFECTION
     Dosage: 100 MG, DAILY
     Route: 042
     Dates: start: 20170204, end: 20170206
  3. PARACETAMOL [Concomitant]
     Active Substance: ACETAMINOPHEN
     Dosage: UNK
     Route: 042
     Dates: start: 20170206, end: 20170206
  4. RANITIDINE HYDROCHLORIDE. [Concomitant]
     Active Substance: RANITIDINE HYDROCHLORIDE
     Dosage: UNK
     Route: 048
     Dates: start: 20170206, end: 20170206
  5. PULMOZYME [Concomitant]
     Active Substance: DORNASE ALFA
     Dosage: UNK
     Route: 055
     Dates: start: 20170204, end: 20170206
  6. CLARITHROMYCIN. [Concomitant]
     Active Substance: CLARITHROMYCIN
     Dosage: UNK
     Route: 048
     Dates: start: 20170204, end: 20170206
  7. CEFOXITIN SODIUM [Concomitant]
     Active Substance: CEFOXITIN SODIUM
     Dosage: UNK
     Route: 042
     Dates: start: 20170204, end: 20170206
  8. AMINOMIX /03395601/ [Concomitant]
     Dosage: UNK
     Route: 042
     Dates: start: 20170206, end: 20170206
  9. ONDANSETRON [Concomitant]
     Active Substance: ONDANSETRON
     Dosage: UNK
     Route: 048
     Dates: start: 20170204, end: 20170206

REACTIONS (4)
  - Vomiting [Unknown]
  - Nausea [Unknown]
  - Abdominal pain [Unknown]
  - Lipase increased [Recovering/Resolving]

NARRATIVE: CASE EVENT DATE: 20170206
